FAERS Safety Report 9846904 (Version 3)
Quarter: 2014Q2

REPORT INFORMATION
  Report Type: Spontaneous
  Country: IT (occurrence: IT)
  Receive Date: 20140127
  Receipt Date: 20140609
  Transmission Date: 20141212
  Serious: Yes (Hospitalization)
  Sender: FDA-Public Use
  Company Number: IT-PFIZER INC-2014022479

PATIENT
  Age: 84 Year
  Sex: Female

DRUGS (1)
  1. DIFLUCAN [Suspect]
     Indication: CANDIDA INFECTION
     Dosage: 50 MG, SINGLE
     Route: 048
     Dates: start: 20131221, end: 20131221

REACTIONS (4)
  - Anaphylactic reaction [Unknown]
  - Chronic obstructive pulmonary disease [Unknown]
  - Erythema [Unknown]
  - Musculoskeletal chest pain [Unknown]
